FAERS Safety Report 5490416-7 (Version None)
Quarter: 2007Q4

REPORT INFORMATION
  Report Type: 
  Country: None (occurrence: None)
  Receive Date: 20071019
  Receipt Date: 20071011
  Transmission Date: 20080405
  Serious: Yes (Other)
  Sender: FDA-Public Use
  Company Number: PHBS2007ES17103

PATIENT
  Age: 60 Year
  Sex: Female

DRUGS (4)
  1. ZOLEDRONIC ACID [Suspect]
     Indication: METASTASES TO BONE
     Dosage: 4 MG GIVEN FOR 15 MIN EVERY 3 OR 4 WEEKS
  2. CALCIUM [Concomitant]
  3. VITAMIN D [Concomitant]
  4. FULVESTRANT [Concomitant]
     Indication: BREAST CANCER

REACTIONS (2)
  - OSTEONECROSIS [None]
  - TOOTH EXTRACTION [None]
